FAERS Safety Report 25971471 (Version 1)
Quarter: 2025Q4

REPORT INFORMATION
  Report Type: Report from Study
  Country: CA (occurrence: CA)
  Receive Date: 20251028
  Receipt Date: 20251028
  Transmission Date: 20260117
  Serious: Yes (Death)
  Sender: ABBVIE
  Company Number: CA-ABBVIE-6522244

PATIENT
  Age: 88 Year

DRUGS (1)
  1. BOTOX [Suspect]
     Active Substance: ONABOTULINUMTOXINA
     Indication: Product used for unknown indication
     Dosage: TIME INTERVAL: AS NECESSARY: FREQUENCY- EVERY THREE MONTH
     Route: 065

REACTIONS (1)
  - Death [Fatal]

NARRATIVE: CASE EVENT DATE: 20251001
